FAERS Safety Report 7268121-6 (Version None)
Quarter: 2011Q1

REPORT INFORMATION
  Report Type: 
  Country: None (occurrence: None)
  Receive Date: 20110201
  Receipt Date: 20110126
  Transmission Date: 20110831
  Serious: No
  Sender: FDA-Public Use
  Company Number: US-PFIZER INC-2011019296

PATIENT
  Sex: Male
  Weight: 79.365 kg

DRUGS (2)
  1. ZMAX [Suspect]
     Indication: CHLAMYDIAL INFECTION
  2. ZMAX [Suspect]
     Indication: GONORRHOEA
     Dosage: 2 G, ONCE
     Route: 048
     Dates: start: 20110125

REACTIONS (1)
  - DIARRHOEA [None]
